FAERS Safety Report 9980923 (Version 2)
Quarter: 2014Q1

REPORT INFORMATION
  Report Type: Spontaneous
  Country: IT (occurrence: IT)
  Receive Date: 20140307
  Receipt Date: 20140318
  Transmission Date: 20141002
  Serious: Yes (Other)
  Sender: FDA-Public Use
  Company Number: IT-JNJFOC-20140216975

PATIENT
  Age: 46 Year
  Sex: Male

DRUGS (3)
  1. HALDOL [Suspect]
     Indication: PSYCHOMOTOR HYPERACTIVITY
     Route: 042
     Dates: start: 20140219, end: 20140219
  2. SEREPRILE [Suspect]
     Indication: ALCOHOLISM
     Route: 042
     Dates: start: 20140218, end: 20140219
  3. MORPHINE HYDROCHLORIDE [Suspect]
     Indication: POSTOPERATIVE ANALGESIA
     Route: 042
     Dates: start: 20140218, end: 20140220

REACTIONS (7)
  - Myalgia [Recovered/Resolved]
  - Agitation [Recovered/Resolved]
  - Hyperthermia [Recovered/Resolved]
  - Muscle spasms [Recovered/Resolved]
  - Tachycardia [Recovered/Resolved]
  - Clonus [Recovered/Resolved]
  - Incorrect route of drug administration [Unknown]
